FAERS Safety Report 5258935-6 (Version None)
Quarter: 2007Q1

REPORT INFORMATION
  Report Type: 
  Country: None (occurrence: None)
  Receive Date: 20061117
  Receipt Date: 20060120
  Transmission Date: 20070707
  Serious: Yes (Other)
  Sender: FDA-Public Use
  Company Number: US-JNJFOC-20051201673

PATIENT
  Age: 50 Year
  Sex: Female
  Weight: 72.5755 kg

DRUGS (7)
  1. LEVOFLOXACIN [Suspect]
     Indication: PNEUMONIA
     Dosage: 500 MG, 1 IN 1 DAY
     Dates: start: 20050721, end: 20050730
  2. CLOZAPINE [Suspect]
     Indication: SCHIZOPHRENIA, PARANOID TYPE
     Dosage: SEE IMAGE
     Route: 048
     Dates: start: 20050717, end: 20050729
  3. CLOZAPINE [Suspect]
     Indication: SCHIZOPHRENIA, PARANOID TYPE
     Dosage: SEE IMAGE
     Route: 048
     Dates: start: 20050717, end: 20050729
  4. LANSOPRAZOLE [Concomitant]
  5. CONJUGATED ESTROGENS [Concomitant]
  6. CALCIUM (CALCIUM) [Concomitant]
  7. BUSPIRONE HCL [Concomitant]

REACTIONS (2)
  - GRANULOCYTOPENIA [None]
  - LEUKOPENIA [None]
